FAERS Safety Report 9384346 (Version 4)
Quarter: 2013Q3

REPORT INFORMATION
  Report Type: Spontaneous
  Country: IT (occurrence: IT)
  Receive Date: 20130705
  Receipt Date: 20130829
  Transmission Date: 20140515
  Serious: Yes (Hospitalization)
  Sender: FDA-Public Use
  Company Number: PHHY2013IT070088

PATIENT
  Age: 84 Year
  Sex: Female

DRUGS (4)
  1. VOLTAREN [Suspect]
     Indication: SCIATICA
     Dosage: 1 DF, QD
     Route: 030
     Dates: start: 20130608, end: 20130613
  2. OMEPRAZOLE [Concomitant]
     Dosage: 20 MG, UNK
     Route: 048
  3. ATENOLOL [Concomitant]
     Dosage: 100 MG, UNK
     Route: 048
  4. MODURETIC [Concomitant]
     Dosage: 1 DF, UNK
     Route: 048
     Dates: start: 20130613

REACTIONS (3)
  - Gastric disorder [Recovered/Resolved]
  - Hypokalaemic syndrome [Recovered/Resolved]
  - Gastritis [Recovered/Resolved]
